FAERS Safety Report 9448915 (Version 1)
Quarter: 2013Q3

REPORT INFORMATION
  Report Type: Report from Study
  Country: BR (occurrence: BR)
  Receive Date: 20130808
  Receipt Date: 20130808
  Transmission Date: 20140515
  Serious: Yes (Other)
  Sender: FDA-Public Use
  Company Number: BR-BAYER-2013-092199

PATIENT
  Age: 44 Year
  Sex: Female
  Weight: 55 kg

DRUGS (5)
  1. YAZ [Suspect]
     Indication: HAEMORRHAGE PROPHYLAXIS
     Dosage: 1 DF, QD
     Route: 048
     Dates: start: 2006, end: 2008
  2. YAZ [Suspect]
     Indication: HAEMORRHAGE PROPHYLAXIS
     Dosage: 2 DF, QD
     Route: 048
  3. DIANE [Suspect]
     Dosage: UNK
     Route: 048
     Dates: start: 2008, end: 2008
  4. SYNTHROID [Concomitant]
     Indication: HYPOTHYROIDISM
     Dosage: 88 ?G, QD
     Route: 048
     Dates: start: 201204
  5. SYNTHROID [Concomitant]
     Indication: HYPOTHYROIDISM
     Dosage: 100 ?G, QD
     Dates: start: 201305

REACTIONS (11)
  - Extra dose administered [None]
  - Inappropriate schedule of drug administration [None]
  - Weight increased [Recovered/Resolved]
  - Abdominal pain [Recovered/Resolved]
  - Abdominal pain [Recovered/Resolved]
  - Pneumothorax [Not Recovered/Not Resolved]
  - Off label use [None]
  - Breast enlargement [Recovered/Resolved]
  - Local swelling [Recovered/Resolved]
  - Nausea [Recovered/Resolved]
  - Malaise [Recovered/Resolved]
